FAERS Safety Report 6403374-5 (Version None)
Quarter: 2009Q4

REPORT INFORMATION
  Report Type: 
  Country: None (occurrence: None)
  Receive Date: 20091016
  Receipt Date: 20091013
  Transmission Date: 20100525
  Serious: Yes (Hospitalization)
  Sender: FDA-Public Use
  Company Number: CH-BRISTOL-MYERS SQUIBB COMPANY-14363865

PATIENT
  Age: 68 Year
  Sex: Male

DRUGS (6)
  1. CETUXIMAB [Suspect]
     Indication: COLORECTAL CANCER
     Dosage: DOSE RESTARTED ON 13-OCT-2008
     Route: 042
     Dates: start: 20080623, end: 20080922
  2. BEVACIZUMAB [Suspect]
     Indication: COLORECTAL CANCER
     Dosage: RECENT INF:22-SEP-2008
     Route: 042
     Dates: start: 20080623
  3. LEUCOVORIN CALCIUM [Suspect]
     Indication: COLORECTAL CANCER
     Dosage: INTERRUPTED ON ON 29-SEP-2008; RESTARTED ON 13-OCT-2008
     Route: 042
     Dates: start: 20080623, end: 20080922
  4. FLUOROURACIL [Suspect]
     Indication: COLORECTAL CANCER
     Dosage: INTERRUPTED ON ON 29-SEP-2008; RESTARTED ON 13-OCT-2008
     Route: 042
     Dates: start: 20080623, end: 20080922
  5. IRINOTECAN HCL [Suspect]
     Indication: COLORECTAL CANCER
     Dosage: INTERRUPTED ON ON 29-SEP-2008; RESTARTED ON 13-OCT-2008
     Route: 042
     Dates: start: 20080630, end: 20080915
  6. OXALIPLATIN [Suspect]
     Indication: COLORECTAL CANCER
     Route: 042
     Dates: start: 20080623

REACTIONS (2)
  - C-REACTIVE PROTEIN INCREASED [None]
  - DIARRHOEA [None]
